FAERS Safety Report 15188587 (Version 4)
Quarter: 2019Q1

REPORT INFORMATION
  Report Type: Spontaneous
  Country: US (occurrence: US)
  Receive Date: 20180724
  Receipt Date: 20190204
  Transmission Date: 20190417
  Serious: Yes (Other)
  Sender: FDA-Public Use
  Company Number: US-PFIZER INC-2018297309

PATIENT
  Age: 55 Year
  Sex: Female

DRUGS (2)
  1. NEURONTIN [Suspect]
     Active Substance: GABAPENTIN
     Indication: MYELITIS TRANSVERSE
     Dosage: 900 MG, UNK (TID-QID)
     Route: 048
     Dates: start: 200303, end: 200312
  2. NEURONTIN [Suspect]
     Active Substance: GABAPENTIN
     Indication: PARAESTHESIA

REACTIONS (5)
  - Drug hypersensitivity [Unknown]
  - Depression [Recovered/Resolved]
  - Vision blurred [Recovered/Resolved]
  - Product use in unapproved indication [Unknown]
  - Suicidal ideation [Unknown]
